FAERS Safety Report 9130823 (Version 1)
Quarter: 2013Q1

REPORT INFORMATION
  Report Type: Spontaneous
  Country: US (occurrence: US)
  Receive Date: 20130301
  Receipt Date: 20130301
  Transmission Date: 20140127
  Serious: No
  Sender: FDA-Public Use
  Company Number: US-JNJFOC-20130210748

PATIENT
  Age: 80 Year
  Sex: Female
  Weight: 64.41 kg

DRUGS (6)
  1. FENTANYL [Suspect]
     Indication: SPINAL COLUMN STENOSIS
     Route: 062
     Dates: start: 20130213
  2. FENTANYL [Suspect]
     Indication: NERVE COMPRESSION
     Route: 062
     Dates: start: 20130213
  3. COUMADIN [Concomitant]
     Route: 048
     Dates: start: 2004
  4. LORTAB [Concomitant]
     Indication: PAIN
     Dosage: AS NEEDED
     Route: 048
     Dates: start: 201301
  5. SOMA [Concomitant]
     Indication: MUSCLE RELAXANT THERAPY
     Dosage: AS NEEDED
     Route: 048
     Dates: start: 201301
  6. RED YEAST RICE EXTRACT [Concomitant]
     Indication: BLOOD CHOLESTEROL INCREASED
     Dosage: AS NEEDED
     Route: 048

REACTIONS (3)
  - Wrong technique in drug usage process [Not Recovered/Not Resolved]
  - Wrong technique in drug usage process [Not Recovered/Not Resolved]
  - Drug ineffective [Not Recovered/Not Resolved]
